FAERS Safety Report 10640120 (Version 1)
Quarter: 2014Q4

REPORT INFORMATION
  Report Type: Spontaneous
  Country: US (occurrence: None)
  Receive Date: 20141208
  Receipt Date: 20141208
  Transmission Date: 20150529
  Serious: Yes (Other)
  Sender: FDA-Public Use
  Company Number: None

PATIENT
  Age: 36 Year
  Sex: Female

DRUGS (1)
  1. DEPO-PROVERA [Suspect]
     Active Substance: MEDROXYPROGESTERONE ACETATE
     Dosage: 1 SHOT INTO A VEIN
     Dates: start: 20131014, end: 20141206

REACTIONS (3)
  - Physical examination abnormal [None]
  - Emotional distress [None]
  - Abdominal distension [None]

NARRATIVE: CASE EVENT DATE: 20131004
